FAERS Safety Report 5167094-X (Version None)
Quarter: 2006Q4

REPORT INFORMATION
  Report Type: 
  Country: None (occurrence: None)
  Receive Date: 20061207
  Receipt Date: 20061205
  Transmission Date: 20070319
  Serious: Yes (Other)
  Sender: FDA-Public Use
  Company Number: US-GLAXOSMITHKLINE-A0630451A

PATIENT
  Age: 90 Year
  Sex: Female

DRUGS (1)
  1. PAXIL [Suspect]
     Indication: PANIC DISORDER
     Dosage: 40MG PER DAY
     Route: 048
     Dates: start: 20040101

REACTIONS (1)
  - PULMONARY FIBROSIS [None]
